FAERS Safety Report 8127006-3 (Version None)
Quarter: 2012Q1

REPORT INFORMATION
  Report Type: 
  Country: None (occurrence: None)
  Receive Date: 20120210
  Receipt Date: 20120131
  Transmission Date: 20120608
  Serious: Yes (Other)
  Sender: FDA-Public Use
  Company Number: CA-JNJFOC-20120201855

PATIENT
  Sex: Female
  Weight: 53 kg

DRUGS (4)
  1. CELEBREX [Concomitant]
     Route: 065
  2. REMICADE [Suspect]
     Indication: ANKYLOSING SPONDYLITIS
     Route: 042
     Dates: start: 20090601
  3. MICARDIS [Concomitant]
     Route: 065
  4. REMICADE [Suspect]
     Indication: IRITIS
     Route: 042
     Dates: start: 20090601

REACTIONS (1)
  - ENZYME ABNORMALITY [None]
